FAERS Safety Report 7512601-2 (Version None)
Quarter: 2011Q2

REPORT INFORMATION
  Report Type: 
  Country: None (occurrence: None)
  Receive Date: 20110531
  Receipt Date: 20110525
  Transmission Date: 20111010
  Serious: Yes (Death)
  Sender: FDA-Public Use
  Company Number: JP-ROCHE-779534

PATIENT
  Age: 63 Year
  Sex: Male

DRUGS (1)
  1. MYCOPHENOLIC ACID [Suspect]
     Dosage: DOSAGE IS UNCERTAIN
     Route: 048

REACTIONS (1)
  - DEATH [None]
